FAERS Safety Report 19713880 (Version 1)
Quarter: 2021Q3

REPORT INFORMATION
  Report Type: Spontaneous
  Country: DE (occurrence: DE)
  Receive Date: 20210818
  Receipt Date: 20210818
  Transmission Date: 20211014
  Serious: Yes (Other)
  Sender: FDA-Public Use
  Company Number: DE-AUROBINDO PHARMA LTD, UK-AUR-APL-2014-06440

PATIENT
  Age: 32 Year
  Sex: Female

DRUGS (15)
  1. SETRALINE 100MG [Suspect]
     Active Substance: SERTRALINE HYDROCHLORIDE
     Indication: PRODUCT USED FOR UNKNOWN INDICATION
     Dosage: 100 MILLIGRAM, DAILY
     Route: 048
     Dates: end: 20120419
  2. SETRALINE 100MG [Suspect]
     Active Substance: SERTRALINE HYDROCHLORIDE
     Dosage: 150 MILLIGRAM, DAILY
     Route: 048
     Dates: start: 20120511, end: 20120522
  3. VENLAFAXINE [Suspect]
     Active Substance: VENLAFAXINE HYDROCHLORIDE
     Dosage: 75 MILLIGRAM, DAILY
     Route: 048
     Dates: start: 20120511, end: 20120514
  4. VENLAFAXINE [Suspect]
     Active Substance: VENLAFAXINE HYDROCHLORIDE
     Dosage: 300 MILLIGRAM, DAILY
     Route: 048
     Dates: start: 20120601
  5. SEROQUEL [Suspect]
     Active Substance: QUETIAPINE FUMARATE
     Dosage: 150 MILLIGRAM, DAILY
     Route: 048
     Dates: start: 20120516, end: 20120531
  6. SETRALINE 100MG [Suspect]
     Active Substance: SERTRALINE HYDROCHLORIDE
     Dosage: 50 MILLIGRAM, DAILY
     Route: 048
     Dates: start: 20120523, end: 20120525
  7. VENLAFAXINE [Suspect]
     Active Substance: VENLAFAXINE HYDROCHLORIDE
     Indication: PRODUCT USED FOR UNKNOWN INDICATION
     Dosage: 37.5 MILLIGRAM, DAILY
     Route: 048
     Dates: start: 20120504, end: 20120510
  8. VENLAFAXINE [Suspect]
     Active Substance: VENLAFAXINE HYDROCHLORIDE
     Dosage: 225 MILLIGRAM, DAILY
     Route: 048
     Dates: start: 20120525, end: 20120531
  9. SEROQUEL [Suspect]
     Active Substance: QUETIAPINE FUMARATE
     Dosage: 125 MILLIGRAM, DAILY
     Route: 048
     Dates: start: 20120515
  10. VENLAFAXINE [Suspect]
     Active Substance: VENLAFAXINE HYDROCHLORIDE
     Dosage: 150 MILLIGRAM, DAILY
     Route: 048
     Dates: start: 20120515, end: 20120524
  11. SEROQUEL [Suspect]
     Active Substance: QUETIAPINE FUMARATE
     Indication: PRODUCT USED FOR UNKNOWN INDICATION
     Dosage: 50 MILLIGRAM, DAILY
     Route: 048
     Dates: start: 20120412, end: 20120514
  12. SEROQUEL [Suspect]
     Active Substance: QUETIAPINE FUMARATE
     Dosage: 200 MILLIGRAM, DAILY
     Route: 048
     Dates: start: 20120601
  13. SETRALINE 100MG [Suspect]
     Active Substance: SERTRALINE HYDROCHLORIDE
     Dosage: 200 MILLIGRAM, DAILY
     Route: 048
     Dates: start: 20120420, end: 20120510
  14. SEROQUEL [Suspect]
     Active Substance: QUETIAPINE FUMARATE
     Dosage: 200 MILLIGRAM, DAILY
     Route: 048
     Dates: start: 20120606
  15. SEROQUEL [Suspect]
     Active Substance: QUETIAPINE FUMARATE
     Dosage: 250 MILLIGRAM, DAILY
     Route: 048
     Dates: start: 20120602, end: 20120605

REACTIONS (3)
  - Drug interaction [Recovered/Resolved]
  - Rash [Recovered/Resolved]
  - Dermatitis allergic [Recovered/Resolved]

NARRATIVE: CASE EVENT DATE: 20120514
